FAERS Safety Report 11855255 (Version 1)
Quarter: 2015Q4

REPORT INFORMATION
  Report Type: Spontaneous
  Country: US (occurrence: None)
  Receive Date: 20151218
  Receipt Date: 20151218
  Transmission Date: 20160305
  Serious: Yes (Other)
  Sender: FDA-Public Use
  Company Number: None

PATIENT
  Age: 2 Day
  Sex: Male

DRUGS (1)
  1. LIDOCAINE AND PRILOCAINE [Suspect]
     Active Substance: LIDOCAINE\PRILOCAINE
     Indication: CIRCUMCISION
     Dosage: 1 APPLICATION
     Route: 061
     Dates: start: 20151211, end: 20151211

REACTIONS (2)
  - Application site swelling [None]
  - Penile swelling [None]

NARRATIVE: CASE EVENT DATE: 20151211
